FAERS Safety Report 15544235 (Version 1)
Quarter: 2018Q4

REPORT INFORMATION
  Report Type: Spontaneous
  Country: FR (occurrence: FR)
  Receive Date: 20181024
  Receipt Date: 20181024
  Transmission Date: 20190205
  Serious: Yes (Other)
  Sender: FDA-Public Use
  Company Number: FR-TEVA-2018-FR-967854

PATIENT
  Age: 92 Year
  Sex: Female
  Weight: 76 kg

DRUGS (9)
  1. ISOPHANE INSULIN [Suspect]
     Active Substance: INSULIN NOS
     Indication: DIABETES MELLITUS
     Route: 058
  2. PARACETAMOL [Concomitant]
     Active Substance: ACETAMINOPHEN
  3. ROSUVASTATIN. [Suspect]
     Active Substance: ROSUVASTATIN
     Indication: HYPERCHOLESTEROLAEMIA
     Route: 048
  4. CANDESARTAN CILEXETIL. [Suspect]
     Active Substance: CANDESARTAN CILEXETIL
     Indication: HYPERTENSION
     Route: 048
  5. NOVONORM [Suspect]
     Active Substance: REPAGLINIDE
     Route: 065
  6. KARDEGIC [Concomitant]
     Active Substance: ASPIRIN DL-LYSINE
  7. FUROSEMIDE. [Concomitant]
     Active Substance: FUROSEMIDE
  8. NEBIVOLOL. [Concomitant]
     Active Substance: NEBIVOLOL
  9. MACROGOL 4000 [Concomitant]
     Active Substance: POLYETHYLENE GLYCOL 4000

REACTIONS (1)
  - Cholestasis [Not Recovered/Not Resolved]
